FAERS Safety Report 6296834-1 (Version None)
Quarter: 2009Q3

REPORT INFORMATION
  Report Type: 
  Country: None (occurrence: None)
  Receive Date: 20090804
  Receipt Date: 20090730
  Transmission Date: 20100115
  Serious: Yes (Life-Threatening, Hospitalization, Other)
  Sender: FDA-Public Use
  Company Number: PHHY2009CA30498

PATIENT
  Sex: Male

DRUGS (2)
  1. CLOZARIL [Suspect]
     Indication: SCHIZOPHRENIA
     Dosage: 200 MCG/DAY
     Route: 048
     Dates: start: 19931214
  2. RISPERDAL [Concomitant]

REACTIONS (1)
  - LUNG NEOPLASM MALIGNANT [None]
